FAERS Safety Report 5177105-3 (Version None)
Quarter: 2006Q4

REPORT INFORMATION
  Report Type: 
  Country: None (occurrence: None)
  Receive Date: 20061207
  Receipt Date: 20061128
  Transmission Date: 20070319
  Serious: Yes (Hospitalization, Other)
  Sender: FDA-Public Use
  Company Number: 2006143134

PATIENT
  Age: 56 Year
  Sex: Male
  Weight: 54 kg

DRUGS (10)
  1. SUTENT [Suspect]
     Indication: METASTATIC RENAL CELL CARCINOMA
     Dosage: 50 MG (50 MG, 1 IN 1 D), ORAL
     Route: 048
     Dates: start: 20061020
  2. BACLOFEN [Concomitant]
  3. MULTIVITAMIN [Concomitant]
  4. ARGININE/IBUPROFEN (ARGININE, IBUPROFEN) [Concomitant]
  5. DIAZEPAM [Concomitant]
  6. FERROUS SULFATE EXSICCATED (FERROUS SULFATE EXSICCATED) [Concomitant]
  7. MAGNESIUM OXIDE (MAGNESIUM OXIDE) [Concomitant]
  8. ZOLPIDEM TARTRATE [Concomitant]
  9. RANITIDINE [Concomitant]
  10. METOCLOPRAMIDE [Concomitant]

REACTIONS (5)
  - HAEMORRHAGE [None]
  - HICCUPS [None]
  - INFLAMMATION [None]
  - OESOPHAGITIS [None]
  - VOMITING [None]
